FAERS Safety Report 10467674 (Version 1)
Quarter: 2014Q3

REPORT INFORMATION
  Report Type: Spontaneous
  Country: JP (occurrence: JP)
  Receive Date: 20140922
  Receipt Date: 20140922
  Transmission Date: 20150326
  Serious: Yes (Other)
  Sender: FDA-Public Use
  Company Number: JP-GLAXOSMITHKLINE-B1017422A

PATIENT
  Age: 42 Year
  Sex: Male

DRUGS (2)
  1. VOTRIENT [Suspect]
     Active Substance: PAZOPANIB HYDROCHLORIDE
     Indication: SOFT TISSUE SARCOMA
     Dosage: 800MG PER DAY
     Route: 048
     Dates: start: 20140618
  2. LOPEMIN [Concomitant]
     Active Substance: LOPERAMIDE HYDROCHLORIDE
     Indication: DIARRHOEA
     Dosage: 2MG PER DAY
     Route: 048
     Dates: start: 20140618

REACTIONS (10)
  - Blood folate decreased [Recovering/Resolving]
  - Anal ulcer [Unknown]
  - Diarrhoea [Recovering/Resolving]
  - Vitamin B12 decreased [Recovering/Resolving]
  - Blood thyroid stimulating hormone increased [Unknown]
  - Alopecia [Recovering/Resolving]
  - Hair colour changes [Recovering/Resolving]
  - Urine output increased [Recovering/Resolving]
  - Skin depigmentation [Unknown]
  - Electrocardiogram abnormal [Unknown]

NARRATIVE: CASE EVENT DATE: 20140718
